FAERS Safety Report 16949174 (Version 3)
Quarter: 2019Q4

REPORT INFORMATION
  Report Type: Report from Study
  Country: None (occurrence: US)
  Receive Date: 20191023
  Receipt Date: 20191216
  Transmission Date: 20200122
  Serious: Yes (Hospitalization, Other)
  Sender: FDA-Public Use
  Company Number: US-ABBVIE-19K-163-2968706-00

PATIENT
  Sex: Female

DRUGS (3)
  1. HUMIRA [Suspect]
     Active Substance: ADALIMUMAB
     Route: 058
  2. HUMIRA [Suspect]
     Active Substance: ADALIMUMAB
     Indication: CROHN^S DISEASE
     Route: 058
  3. HUMIRA [Suspect]
     Active Substance: ADALIMUMAB
     Route: 058

REACTIONS (16)
  - Ileostomy [Unknown]
  - Headache [Unknown]
  - Sepsis [Unknown]
  - Food intolerance [Unknown]
  - Weight decreased [Unknown]
  - Pain in extremity [Unknown]
  - Diarrhoea [Unknown]
  - Arthritis [Unknown]
  - Back pain [Unknown]
  - Breast mass [Unknown]
  - Scoliosis [Unknown]
  - Nodule [Unknown]
  - Sciatica [Unknown]
  - Small intestinal perforation [Unknown]
  - Alopecia [Unknown]
  - Abdominal pain upper [Unknown]
